FAERS Safety Report 8495255-0 (Version None)
Quarter: 2012Q3

REPORT INFORMATION
  Report Type: 
  Country: None (occurrence: None)
  Receive Date: 20120709
  Receipt Date: 20120702
  Transmission Date: 20120928
  Serious: Yes (Hospitalization)
  Sender: FDA-Public Use
  Company Number: US-BAYER-2012-022161

PATIENT
  Age: 30 Year
  Sex: Female
  Weight: 57 kg

DRUGS (14)
  1. YAZ [Suspect]
     Indication: PREMENSTRUAL SYNDROME
  2. TERAZOL 1 [Concomitant]
     Indication: VAGINAL INFECTION
     Dosage: 380 MG, DAILY, HS
     Route: 067
  3. NEXIUM [Concomitant]
  4. CYCLOBENZAPRINE [Concomitant]
     Dosage: UNK UNK, PRN
  5. CYMBALTA [Concomitant]
     Indication: DEPRESSION
     Dosage: 30 MG-60 MG, DAILY
     Route: 048
  6. MELATONIN [Concomitant]
     Indication: INSOMNIA
     Dosage: 3 MG, HS
     Route: 048
  7. ASTEPRO [Concomitant]
     Indication: RHINITIS ALLERGIC
     Dosage: 0.15 %, 2 SPRAYS EACH NOSTRIL
     Route: 045
  8. TOPAMAX [Concomitant]
     Dosage: 25 MG, 2 TABLETS, QD
     Route: 048
  9. YAZ [Suspect]
     Indication: CONTRACEPTION
     Dosage: UNK
     Dates: start: 20090309, end: 20100601
  10. FEXOFENADINE [Concomitant]
  11. FLOXIN [Concomitant]
     Indication: OTITIS EXTERNA
     Dosage: 0.3 %, 10 DROPS IN EACH AFFECTED EAR, BID, 10 DAYS
     Route: 001
  12. KAPIDEX [Concomitant]
     Indication: DYSPEPSIA
     Dosage: 60 MG, DAILY
     Route: 048
  13. ZYRTEC [Concomitant]
     Indication: MULTIPLE ALLERGIES
     Dosage: UNK
     Dates: start: 20090101
  14. CIPROFLOXACIN HCL [Concomitant]
     Indication: SINUSITIS
     Dosage: 500 MG, EVERY 12 HOURS FOR 10 DAYS

REACTIONS (11)
  - CONSTIPATION [None]
  - PROCEDURAL PAIN [None]
  - PAIN [None]
  - VOMITING [None]
  - PROCEDURAL NAUSEA [None]
  - CHOLECYSTITIS [None]
  - NAUSEA [None]
  - INJURY [None]
  - GASTRITIS [None]
  - ABDOMINAL PAIN UPPER [None]
  - PROCEDURAL VOMITING [None]
